FAERS Safety Report 8516226-1 (Version None)
Quarter: 2012Q3

REPORT INFORMATION
  Report Type: 
  Country: None (occurrence: None)
  Receive Date: 20120717
  Receipt Date: 20120709
  Transmission Date: 20120928
  Serious: Yes (Death, Hospitalization)
  Sender: FDA-Public Use
  Company Number: JP-BAYER-200912857BYL

PATIENT
  Age: 65 Year
  Sex: Male
  Weight: 53.4 kg

DRUGS (13)
  1. NEXAVAR [Suspect]
     Dosage: 600 MG (DAILY DOSE), , ORAL
     Route: 048
     Dates: start: 20090722, end: 20090730
  2. PROHEPARUM [Concomitant]
     Dosage: SINCE BEFORE ADMINISTRATION
     Route: 048
  3. MONILAC [Concomitant]
     Dosage: SINCE BEFORE ADMINISTRATION
     Route: 048
  4. RABEPRAZOLE SODIUM [Concomitant]
     Dosage: SINCE BEFORE ADMINISTRATION
     Route: 048
  5. GLYCYRON [GLYCYRRHIZIC ACID] [Concomitant]
     Dosage: SINCE BEFORE ADMINISTRATION
     Route: 048
  6. FOY [Concomitant]
     Indication: DISSEMINATED INTRAVASCULAR COAGULATION
     Dosage: 2000 MG (DAILY DOSE), , UNKNOWN
     Route: 065
     Dates: start: 20090810
  7. RHYTHMY [Concomitant]
     Dosage: SINCE BEFORE ADMINISTRATION
     Route: 048
  8. ALDACTONE [Concomitant]
     Dosage: SINCE BEFORE ADMINISTRATION
     Route: 048
  9. ETODOLAC [Concomitant]
     Dosage: 400 MG (DAILY DOSE), , ORAL
     Route: 048
     Dates: start: 20090709
  10. FLOMAX [Concomitant]
     Dosage: 300 MG (DAILY DOSE), , ORAL
     Route: 048
     Dates: start: 20090704, end: 20090709
  11. NEXAVAR [Suspect]
     Indication: HEPATIC NEOPLASM MALIGNANT
     Route: 048
     Dates: start: 20090629, end: 20090721
  12. URSO 250 [Concomitant]
     Dosage: SINCE BEFORE ADMINISTRATION
     Route: 048
  13. LOXONIN [Concomitant]
     Dosage: 60 MG (DAILY DOSE), , ORAL
     Route: 048
     Dates: start: 20090704

REACTIONS (10)
  - HEPATIC FUNCTION ABNORMAL [None]
  - HEPATIC NEOPLASM MALIGNANT [None]
  - HAEMATEMESIS [None]
  - RENAL FAILURE [None]
  - DIARRHOEA [None]
  - HEPATIC FAILURE [None]
  - OESOPHAGEAL VARICES HAEMORRHAGE [None]
  - RASH [None]
  - INTERSTITIAL LUNG DISEASE [None]
  - NEOPLASM PROGRESSION [None]
